APPROVED DRUG PRODUCT: CEFUROXIME AXETIL
Active Ingredient: CEFUROXIME AXETIL
Strength: EQ 500MG BASE
Dosage Form/Route: TABLET;ORAL
Application: A065190 | Product #002
Applicant: ANI PHARMACEUTICALS INC
Approved: Oct 18, 2004 | RLD: No | RS: No | Type: DISCN